FAERS Safety Report 23323334 (Version 1)
Quarter: 2023Q4

REPORT INFORMATION
  Report Type: Spontaneous
  Country: US (occurrence: None)
  Receive Date: 20231220
  Receipt Date: 20231220
  Transmission Date: 20240109
  Serious: No
  Sender: FDA-Public Use
  Company Number: US-ROCHE-3292403

PATIENT
  Sex: Male

DRUGS (1)
  1. RITUXAN [Suspect]
     Active Substance: RITUXIMAB
     Indication: Rheumatoid arthritis
     Dosage: STRENTH: 10 MG/ML, FREQUENCY: WEEK 0, 2, EVERY 6 MONTH
     Route: 041
     Dates: start: 202010

REACTIONS (2)
  - Dizziness [Unknown]
  - Dyspnoea [Unknown]
